FAERS Safety Report 21682943 (Version 2)
Quarter: 2022Q4

REPORT INFORMATION
  Report Type: Spontaneous
  Country: RU (occurrence: RU)
  Receive Date: 20221205
  Receipt Date: 20221209
  Transmission Date: 20230113
  Serious: Yes (Death, Other)
  Sender: FDA-Public Use
  Company Number: RU-FreseniusKabi-FK202217261

PATIENT
  Age: 57 Year
  Sex: Male

DRUGS (5)
  1. IRINOTECAN [Suspect]
     Active Substance: IRINOTECAN
     Indication: Chemotherapy
     Dosage: THE PATIENT UNDERWENT 4 COURSES OF INDUCTION CHEMOTHERAPY ACCORDING TO THE SCHEME: FOLFOXIRI + BEVAC
     Dates: start: 20210726, end: 20210928
  2. OXALIPLATIN [Suspect]
     Active Substance: OXALIPLATIN
     Indication: Chemotherapy
     Dosage: 4 COURSES OF INDUCTION CHEMOTHERAPY ACCORDING TO THE SCHEME: FOLFOXIRI + BEVACIZUMAB
     Dates: start: 20210726, end: 20210928
  3. LEUCOVORIN CALCIUM [Suspect]
     Active Substance: LEUCOVORIN CALCIUM
     Indication: Chemotherapy
     Dosage: THE PATIENT UNDERWENT 4 COURSES OF INDUCTION CHEMOTHERAPY ACCORDING TO THE SCHEME: FOLFOXIRI + BEVAC
     Dates: start: 20210726, end: 20210928
  4. FLUOROURACIL [Suspect]
     Active Substance: FLUOROURACIL
     Indication: Chemotherapy
     Dosage: THE PATIENT UNDERWENT 4 COURSES OF INDUCTION CHEMOTHERAPY ACCORDING TO THE SCHEME: FOLFOXIRI + BEVAC
     Dates: start: 20210726, end: 20210928
  5. BEVACIZUMAB [Suspect]
     Active Substance: BEVACIZUMAB
     Indication: Chemotherapy
     Dosage: THE PATIENT UNDERWENT 4 COURSES OF INDUCTION CHEMOTHERAPY ACCORDING TO THE SCHEME: FOLFOXIRI + BEVAC
     Dates: start: 20210726, end: 20210928

REACTIONS (5)
  - Peritonitis [Fatal]
  - Sepsis [Fatal]
  - Duodenal ulcer [Unknown]
  - Intestinal perforation [Unknown]
  - Gastrointestinal haemorrhage [Unknown]
